FAERS Safety Report 6688508-X (Version None)
Quarter: 2010Q2

REPORT INFORMATION
  Report Type: 
  Country: None (occurrence: None)
  Receive Date: 20100420
  Receipt Date: 20100409
  Transmission Date: 20101027
  Serious: Yes (Hospitalization)
  Sender: FDA-Public Use
  Company Number: DE-AMGEN-QUU389579

PATIENT
  Age: 70 Year
  Sex: Female

DRUGS (17)
  1. CINACALCET HYDROCHLORIDE [Suspect]
     Indication: HYPERPARATHYROIDISM SECONDARY
     Route: 048
     Dates: start: 20060101
  2. FENTANYL [Suspect]
     Indication: PAIN
     Route: 062
     Dates: start: 20090601, end: 20090727
  3. BENSERAZIDE HYDROCHLORIDE/LEVODOPA [Suspect]
     Route: 048
     Dates: start: 20060101
  4. CARVEDILOL [Suspect]
     Route: 048
     Dates: start: 20060101
  5. CANDESARTAN CILEXETIL [Suspect]
     Route: 048
     Dates: start: 20070101
  6. OMEPRAZOLE [Suspect]
     Route: 048
     Dates: start: 20050101
  7. NOVONORM [Suspect]
     Route: 048
     Dates: start: 20070101
  8. ACTONEL [Suspect]
     Route: 048
     Dates: start: 20080101
  9. SIMVASTATIN [Suspect]
     Route: 048
     Dates: start: 20050101
  10. DREISAVIT [Concomitant]
     Route: 048
     Dates: start: 20050101, end: 20090726
  11. FOSRENOL [Concomitant]
     Route: 048
     Dates: start: 20070601
  12. DIGITOXIN TAB [Concomitant]
     Route: 048
     Dates: start: 20070601
  13. MCP-RATIOPHARM [Concomitant]
     Route: 048
     Dates: start: 20050101, end: 20090731
  14. ACETYLSALICYLIC ACID [Concomitant]
     Dates: start: 20050101
  15. METAMIZOLE [Concomitant]
     Route: 048
     Dates: start: 20090601
  16. REPAGLINIDE [Concomitant]
  17. CANDESARTAN [Concomitant]

REACTIONS (2)
  - SOMNOLENCE [None]
  - TRANSAMINASES INCREASED [None]
